FAERS Safety Report 17099889 (Version 1)
Quarter: 2019Q4

REPORT INFORMATION
  Report Type: Spontaneous
  Country: US (occurrence: US)
  Receive Date: 20191106
  Receipt Date: 20191106
  Transmission Date: 20200122
  Serious: Yes (Hospitalization)
  Sender: FDA-Public Use
  Company Number: None

PATIENT
  Age: 55 Year
  Sex: Male

DRUGS (3)
  1. ACTEMRA [Suspect]
     Active Substance: TOCILIZUMAB
     Indication: MYALGIA
     Dosage: ?          OTHER DOSE:162MG/0.9ML;?
     Route: 058
     Dates: start: 20190813
  2. PROPRANOLOL [Concomitant]
     Active Substance: PROPRANOLOL HYDROCHLORIDE
  3. ACTEMRA [Suspect]
     Active Substance: TOCILIZUMAB
     Indication: ARTERITIS
     Dosage: ?          OTHER DOSE:162MG/0.9ML;?
     Route: 058
     Dates: start: 20190813

REACTIONS (4)
  - Blood iron decreased [None]
  - Peripheral swelling [None]
  - Dehydration [None]
  - Muscular weakness [None]

NARRATIVE: CASE EVENT DATE: 20191028
